FAERS Safety Report 6688874-5 (Version None)
Quarter: 2010Q2

REPORT INFORMATION
  Report Type: 
  Country: None (occurrence: None)
  Receive Date: 20100420
  Receipt Date: 20100406
  Transmission Date: 20101027
  Serious: Yes (Hospitalization)
  Sender: FDA-Public Use
  Company Number: US-ELI_LILLY_AND_COMPANY-US201001003948

PATIENT
  Sex: Female

DRUGS (31)
  1. FORTEO [Suspect]
     Indication: OSTEOPOROSIS
     Dosage: 20 UG, DAILY (1/D)
  2. OXYGEN [Concomitant]
     Dosage: 3 LITER, UNKNOWN
  3. OXYGEN [Concomitant]
     Dosage: 2 LITER, EACH EVENING
  4. OXYGEN [Concomitant]
     Dosage: 2 LITER, AS NEEDED
  5. ADVAIR DISKUS 100/50 [Concomitant]
     Dosage: UNK D/F, 2/D
     Route: 055
  6. ALBUTEROL SULFATE AND IPRATROPIUM BROMIDE [Concomitant]
     Dosage: UNK, AS NEEDED
     Route: 055
  7. GUAIFENESIN [Concomitant]
     Dosage: 600 MG, 2/D
  8. SPIRIVA [Concomitant]
     Dosage: 18 UG, DAILY (1/D)
  9. TESSALON [Concomitant]
     Indication: COUGH
     Dosage: UNK, AS NEEDED
  10. TYLENOL (CAPLET) [Concomitant]
     Dosage: UNK, AS NEEDED
  11. ALTACE [Concomitant]
     Dosage: 10 MG, DAILY (1/D)
  12. AMBIEN [Concomitant]
     Dosage: 5 MG, EACH EVENING
  13. CALCIUM W/VITAMIN D /00188401/ [Concomitant]
     Dosage: UNK, 2/D
  14. DULCOLAX [Concomitant]
     Dosage: UNK, AS NEEDED
  15. IMDUR [Concomitant]
     Dosage: 30 MG, DAILY (1/D)
  16. LASIX [Concomitant]
     Dosage: 40 MG, DAILY (1/D)
  17. MILK OF MAGNESIA TAB [Concomitant]
     Dosage: UNK, AS NEEDED
  18. MIRALAX [Concomitant]
     Dosage: UNK, AS NEEDED
  19. MULTI-VITAMIN [Concomitant]
     Dosage: UNK, DAILY (1/D)
  20. NITROGLYCERIN [Concomitant]
     Dosage: UNK, AS NEEDED
  21. PREDNISONE TAB [Concomitant]
     Dosage: 40 MG, DAILY (1/D)
  22. PREDNISONE TAB [Concomitant]
     Dosage: 30 MG, DAILY (1/D)
  23. PREDNISONE TAB [Concomitant]
     Dosage: 20 MG, DAILY (1/D)
  24. PREDNISONE TAB [Concomitant]
     Dosage: 10 MG, DAILY (1/D)
  25. PREDNISONE TAB [Concomitant]
     Dosage: 10 MG, QOD
  26. SALINE [Concomitant]
     Dosage: UNK, AS NEEDED
     Route: 045
  27. SOTALOL HCL [Concomitant]
     Dosage: 80 MG, 2/D
  28. VALIUM [Concomitant]
     Dosage: 5 MG, AS NEEDED
  29. VITAMIN D [Concomitant]
     Dosage: 1000 UG, DAILY (1/D)
  30. VITAMIN C [Concomitant]
     Dosage: 1000 MG, DAILY (1/D)
  31. ZOCOR [Concomitant]
     Dosage: 40 MG, DAILY (1/D)

REACTIONS (2)
  - CANDIDIASIS [None]
  - CHRONIC OBSTRUCTIVE PULMONARY DISEASE [None]
